FAERS Safety Report 9610584 (Version 2)
Quarter: 2013Q4

REPORT INFORMATION
  Report Type: Spontaneous
  Country: DE (occurrence: DE)
  Receive Date: 20131009
  Receipt Date: 20131113
  Transmission Date: 20140711
  Serious: Yes (Other)
  Sender: FDA-Public Use
  Company Number: PHHY2013DE112648

PATIENT
  Sex: Male

DRUGS (2)
  1. TEGRETOL [Suspect]
     Dosage: 800 MG, DAILY
     Dates: end: 2013
  2. TEGRETOL [Suspect]
     Dosage: 800 MG, DAILY
     Dates: start: 2013

REACTIONS (1)
  - Convulsion [Unknown]
